FAERS Safety Report 14216707 (Version 2)
Quarter: 2017Q4

REPORT INFORMATION
  Report Type: Spontaneous
  Country: BR (occurrence: BR)
  Receive Date: 20171122
  Receipt Date: 20171206
  Transmission Date: 20180321
  Serious: Yes (Other)
  Sender: FDA-Public Use
  Company Number: PHHY2017BR171028

PATIENT
  Age: 78 Year
  Sex: Female
  Weight: 91 kg

DRUGS (3)
  1. PURAN [Concomitant]
     Active Substance: LEVOTHYROXINE SODIUM
     Indication: HYPOTHYROIDISM
     Dosage: 1 DF, QD
     Route: 048
  2. ESTRADOT [Suspect]
     Active Substance: ESTRADIOL
     Indication: MENOPAUSE
     Dosage: 2 DF, QD
     Route: 062
  3. ESTRADOT [Suspect]
     Active Substance: ESTRADIOL
     Indication: FEELING HOT

REACTIONS (12)
  - Torticollis [Not Recovered/Not Resolved]
  - Osteoarthritis [Recovering/Resolving]
  - Product adhesion issue [Unknown]
  - Type 2 diabetes mellitus [Recovering/Resolving]
  - Clinodactyly [Recovering/Resolving]
  - Vitamin D deficiency [Recovering/Resolving]
  - Multiple sclerosis [Not Recovered/Not Resolved]
  - Drug ineffective [Unknown]
  - Nasal polyps [Not Recovered/Not Resolved]
  - Movement disorder [Not Recovered/Not Resolved]
  - Malaise [Unknown]
  - Asthma [Not Recovered/Not Resolved]

NARRATIVE: CASE EVENT DATE: 20171114
